FAERS Safety Report 4331307-4 (Version None)
Quarter: 2004Q1

REPORT INFORMATION
  Report Type: 
  Country: None (occurrence: None)
  Receive Date: 20040331
  Receipt Date: 20040322
  Transmission Date: 20041129
  Serious: Yes (Other)
  Sender: FDA-Public Use
  Company Number: 2004-03-1534

PATIENT
  Age: 46 Year
  Sex: Female
  Weight: 63 kg

DRUGS (3)
  1. RIBAVIRIN [Suspect]
     Indication: HEPATITIS C
     Dosage: ORAL
     Route: 048
     Dates: start: 19950101
  2. INTRON A [Suspect]
     Indication: HEPATITIS C
     Dosage: 3 MU TIW
     Dates: start: 19950101
  3. INTERFERON ALFA INJECTABLE [Suspect]
     Indication: HEPATITIS C
     Dosage: 6 MU TIW
     Dates: start: 19950101

REACTIONS (4)
  - NEUTROPENIA [None]
  - PORTAL VEIN THROMBOSIS [None]
  - SEPSIS [None]
  - SPLENIC ABSCESS [None]
